FAERS Safety Report 7598381-3 (Version None)
Quarter: 2011Q3

REPORT INFORMATION
  Report Type: 
  Country: None (occurrence: None)
  Receive Date: 20110708
  Receipt Date: 20110630
  Transmission Date: 20111222
  Serious: Yes (Other)
  Sender: FDA-Public Use
  Company Number: US-ABBOTT-11P-163-0835958-00

PATIENT
  Sex: Female
  Weight: 90.8 kg

DRUGS (3)
  1. FOLIC ACID [Concomitant]
     Indication: VITAMIN SUPPLEMENTATION
  2. METHOTREXATE [Concomitant]
     Indication: RHEUMATOID ARTHRITIS
  3. HUMIRA [Suspect]
     Indication: RHEUMATOID ARTHRITIS
     Dates: start: 20110201

REACTIONS (4)
  - THYROID CANCER [None]
  - TOOTH INFECTION [None]
  - WEIGHT INCREASED [None]
  - MEDICAL DEVICE COMPLICATION [None]
